FAERS Safety Report 20700936 (Version 1)
Quarter: 2022Q2

REPORT INFORMATION
  Report Type: Report from Study
  Country: CA (occurrence: CA)
  Receive Date: 20220412
  Receipt Date: 20220412
  Transmission Date: 20220721
  Serious: Yes (Other)
  Sender: FDA-Public Use
  Company Number: CA-OTSUKA-2022_001953

PATIENT
  Sex: Female

DRUGS (2)
  1. CEDAZURIDINE\DECITABINE [Suspect]
     Active Substance: CEDAZURIDINE\DECITABINE
     Indication: Myelodysplastic syndrome
     Dosage: QD (ON DAYS 1-5) OF 28 DAYS CYCLE
     Route: 065
     Dates: start: 20211109
  2. CEDAZURIDINE\DECITABINE [Suspect]
     Active Substance: CEDAZURIDINE\DECITABINE
     Dosage: QD (ON DAYS 1-3) OF 28 DAYS CYCLE
     Route: 065
     Dates: end: 20220407

REACTIONS (3)
  - Stem cell transplant [Unknown]
  - Neutropenia [Unknown]
  - Thrombocytopenia [Unknown]
